FAERS Safety Report 9850329 (Version 1)
Quarter: 2013Q4

REPORT INFORMATION
  Report Type: Spontaneous
  Country: US (occurrence: None)
  Receive Date: 20131226
  Receipt Date: 20131226
  Transmission Date: 20140711
  Serious: Yes (Other)
  Sender: FDA-Public Use
  Company Number: PHEH2012US015616

PATIENT
  Age: 92 Year
  Sex: Female

DRUGS (5)
  1. DIOVAN [Suspect]
     Dosage: 1 DF (160 MG), DAILY
     Dates: start: 20120806, end: 20120807
  2. CARVEDILOL (CARVEDILOL) [Concomitant]
  3. FUROSEMIDE (FUROSEMIDE) [Concomitant]
  4. POTASSIUM (POTASSIUM) [Concomitant]
  5. BENAZEPRIL (BENAZEPRIL) [Concomitant]

REACTIONS (1)
  - Hypotension [None]
